FAERS Safety Report 15297897 (Version 1)
Quarter: 2018Q3

REPORT INFORMATION
  Report Type: Report from Study
  Country: FI (occurrence: FI)
  Receive Date: 20180820
  Receipt Date: 20180820
  Transmission Date: 20181010
  Serious: Yes (Death, Other)
  Sender: FDA-Public Use
  Company Number: FI-PFIZER INC-2018323108

PATIENT
  Age: 42 Year
  Sex: Male

DRUGS (1)
  1. ATGAM [Suspect]
     Active Substance: EQUINE THYMOCYTE IMMUNE GLOBULIN
     Indication: IMMUNOSUPPRESSANT DRUG THERAPY
     Dosage: 10 MG/KG, DAILY (ON DAYS ?5 TO ?3)

REACTIONS (2)
  - Post transplant lymphoproliferative disorder [Fatal]
  - Epstein-Barr virus infection [Fatal]
